FAERS Safety Report 7150419-3 (Version None)
Quarter: 2010Q4

REPORT INFORMATION
  Report Type: 
  Country: None (occurrence: None)
  Receive Date: 20101210
  Receipt Date: 20101129
  Transmission Date: 20110411
  Serious: Yes (Other)
  Sender: FDA-Public Use
  Company Number: PHHY2010ES80883

PATIENT
  Age: 56 Year
  Sex: Male

DRUGS (4)
  1. ZOLEDRONATE [Suspect]
     Indication: MULTIPLE MYELOMA
     Dosage: UNK
     Dates: start: 20030101
  2. PAMIDRONATE DISODIUM [Suspect]
     Indication: MULTIPLE MYELOMA
     Dosage: UNK
  3. POLYCHEMOTHERAPY [Concomitant]
  4. INTERFERON [Concomitant]

REACTIONS (7)
  - ABSCESS ORAL [None]
  - DEBRIDEMENT [None]
  - FISTULA [None]
  - OSTEOMYELITIS [None]
  - OSTEONECROSIS OF JAW [None]
  - SUBCUTANEOUS ABSCESS [None]
  - TOOTH LOSS [None]
